FAERS Safety Report 20642666 (Version 2)
Quarter: 2022Q2

REPORT INFORMATION
  Report Type: Spontaneous
  Country: US (occurrence: US)
  Receive Date: 20220328
  Receipt Date: 20220408
  Transmission Date: 20220721
  Serious: No
  Sender: FDA-Public Use
  Company Number: US-AIMMUNE THERAPEUTICS, INC.-2022AIMT00221

PATIENT

DRUGS (5)
  1. PALFORZIA [Suspect]
     Active Substance: PEANUT
     Indication: Food allergy
     Dosage: 200 MG, 1X/DAY
     Route: 048
     Dates: start: 20220309, end: 20220320
  2. PALFORZIA [Suspect]
     Active Substance: PEANUT
     Dosage: 200 MG, ONCE, LAST DOSE PRIOR EVENT ONSET
     Route: 048
     Dates: start: 202203, end: 202203
  3. PALFORZIA [Suspect]
     Active Substance: PEANUT
     Dosage: 160 MG, 1X/DAY, REDUCED
     Route: 048
     Dates: start: 20220321
  4. PREDNISONE [Concomitant]
     Active Substance: PREDNISONE
     Indication: Dermatitis contact
     Dosage: UNK
     Dates: start: 20220330
  5. PREDNISONE [Concomitant]
     Active Substance: PREDNISONE
     Indication: Hand dermatitis

REACTIONS (3)
  - Ear pruritus [Unknown]
  - Abdominal discomfort [Unknown]
  - Oral pruritus [Unknown]

NARRATIVE: CASE EVENT DATE: 20220301
